FAERS Safety Report 19020704 (Version 1)
Quarter: 2021Q1

REPORT INFORMATION
  Report Type: Spontaneous
  Country: NP (occurrence: NP)
  Receive Date: 20210317
  Receipt Date: 20210317
  Transmission Date: 20210420
  Serious: Yes (Life-Threatening, Hospitalization, Other)
  Sender: FDA-Public Use
  Company Number: NP-STRIDES ARCOLAB LIMITED-2021SP002992

PATIENT
  Age: 9 Year
  Sex: Female

DRUGS (3)
  1. NORMAL SALINE [Concomitant]
     Active Substance: SODIUM CHLORIDE
     Indication: PROPHYLAXIS
     Dosage: 100 MILLILITER, INFUSION
     Route: 042
  2. VANCOMYCIN [Suspect]
     Active Substance: VANCOMYCIN
     Indication: PROPHYLAXIS
     Dosage: 500 MILLIGRAM, INFUSION
     Route: 042
  3. NORMAL SALINE [Concomitant]
     Active Substance: SODIUM CHLORIDE
     Dosage: UNK, INFIUSED RAPIDLY
     Route: 065

REACTIONS (5)
  - Incorrect product administration duration [Unknown]
  - Cardiotoxicity [Recovered/Resolved]
  - Cardio-respiratory arrest [Recovered/Resolved]
  - Anaphylactoid reaction [Recovered/Resolved]
  - Red man syndrome [Recovered/Resolved]
